FAERS Safety Report 9434339 (Version 1)
Quarter: 2013Q3

REPORT INFORMATION
  Report Type: Report from Study
  Country: JP (occurrence: JP)
  Receive Date: 20130801
  Receipt Date: 20130801
  Transmission Date: 20140515
  Serious: Yes (Other)
  Sender: FDA-Public Use
  Company Number: JP-AMGEN-JPNCT2013053869

PATIENT
  Age: 58 Year
  Sex: Male
  Weight: 75 kg

DRUGS (19)
  1. DARBEPOETIN ALFA [Suspect]
     Indication: NEPHROGENIC ANAEMIA
     Dosage: 30 MUG, QD
     Route: 058
     Dates: start: 20110422
  2. DARBEPOETIN ALFA [Suspect]
     Dosage: 40 MUG, QD
     Route: 058
     Dates: start: 20110527
  3. DARBEPOETIN ALFA [Suspect]
     Dosage: 60 MUG, QD
     Route: 058
     Dates: start: 20110701, end: 20110701
  4. DARBEPOETIN ALFA [Suspect]
     Dosage: 60 MUG, QD
     Route: 058
     Dates: start: 20110819, end: 20110819
  5. DARBEPOETIN ALFA [Suspect]
     Dosage: 60 MUG, QD
     Route: 058
     Dates: start: 20111007, end: 20111007
  6. DARBEPOETIN ALFA [Suspect]
     Dosage: 60 MUG, QD
     Route: 058
     Dates: start: 20111216, end: 20111216
  7. DARBEPOETIN ALFA [Suspect]
     Dosage: 60 MUG, QD
     Route: 058
     Dates: start: 20120413, end: 20120413
  8. DARBEPOETIN ALFA [Suspect]
     Dosage: 120 MUG, QD
     Route: 058
     Dates: start: 20120518, end: 20120518
  9. DARBEPOETIN ALFA [Suspect]
     Dosage: 120 MUG, Q4WK
     Route: 058
     Dates: start: 20120713
  10. SODIUM BICARBONATE [Concomitant]
     Indication: DIABETIC NEPHROPATHY
     Dosage: UNK
     Route: 048
  11. LIDOMEX [Concomitant]
     Indication: PRURIGO
     Dosage: UNK
     Route: 061
  12. FAMOSTAGINE [Concomitant]
     Dosage: UNK
     Route: 048
  13. UBRETID [Concomitant]
     Dosage: UNK
     Route: 048
  14. HARNAL D [Concomitant]
     Dosage: UNK
     Route: 048
  15. RESTAMIN [Concomitant]
     Indication: PRURIGO
     Dosage: UNK
     Route: 061
  16. URIEF [Concomitant]
     Dosage: UNK
     Route: 048
  17. DAIKENTYUTO [Concomitant]
     Dosage: UNK
     Route: 048
  18. PL GRAN. [Concomitant]
     Indication: PRURIGO
     Dosage: UNK
     Route: 048
  19. FLOMOX [Concomitant]
     Indication: NASOPHARYNGITIS
     Dosage: UNK
     Route: 048

REACTIONS (2)
  - Tumour marker increased [Not Recovered/Not Resolved]
  - Hypertension [Recovering/Resolving]
